FAERS Safety Report 5367278-1 (Version None)
Quarter: 2007Q2

REPORT INFORMATION
  Report Type: 
  Country: None (occurrence: None)
  Receive Date: 20070622
  Receipt Date: 20070620
  Transmission Date: 20071010
  Serious: Yes (Other)
  Sender: FDA-Public Use
  Company Number: A0657147A

PATIENT
  Sex: Female

DRUGS (4)
  1. ALLI [Suspect]
     Route: 048
     Dates: start: 20070615, end: 20070617
  2. CELEBREX [Concomitant]
  3. DIFLUCAN [Concomitant]
  4. MUSCLE RELAXER [Concomitant]

REACTIONS (11)
  - DISCOMFORT [None]
  - FAECAL INCONTINENCE [None]
  - FATIGUE [None]
  - FREQUENT BOWEL MOVEMENTS [None]
  - HEART RATE INCREASED [None]
  - INCREASED APPETITE [None]
  - NERVOUSNESS [None]
  - PAINFUL DEFAECATION [None]
  - SOMNOLENCE [None]
  - STEATORRHOEA [None]
  - TREMOR [None]
